FAERS Safety Report 21726193 (Version 1)
Quarter: 2022Q4

REPORT INFORMATION
  Report Type: Spontaneous
  Country: US (occurrence: US)
  Receive Date: 20221214
  Receipt Date: 20221214
  Transmission Date: 20230113
  Serious: No
  Sender: FDA-Public Use
  Company Number: US-NOVEN PHARMACEUTICALS, INC.-2022-NOV-US001020

PATIENT
  Sex: Female

DRUGS (1)
  1. ESTRADIOL [Suspect]
     Active Substance: ESTRADIOL
     Indication: Product used for unknown indication
     Dosage: 0.1MG, 3-4 DAYS
     Route: 062

REACTIONS (4)
  - Product residue present [Not Recovered/Not Resolved]
  - Device adhesion issue [Unknown]
  - Product adhesion issue [Not Recovered/Not Resolved]
  - No adverse event [Unknown]
